FAERS Safety Report 11878727 (Version 1)
Quarter: 2015Q4

REPORT INFORMATION
  Report Type: Other
  Country: IT (occurrence: IT)
  Receive Date: 20151230
  Receipt Date: 20151230
  Transmission Date: 20160305
  Serious: Yes (Other)
  Sender: FDA-Public Use
  Company Number: IT-TAKEDA-2015MPI008136

PATIENT

DRUGS (3)
  1. VELCADE [Suspect]
     Active Substance: BORTEZOMIB
     Indication: NON-HODGKIN^S LYMPHOMA
     Dosage: 2.6 MG, UNK
     Route: 058
     Dates: start: 20141114
  2. VELCADE [Suspect]
     Active Substance: BORTEZOMIB
     Dosage: 2 MG, UNK
     Route: 058
     Dates: start: 20150227, end: 20150410
  3. MABTHERA [Concomitant]
     Active Substance: RITUXIMAB
     Indication: NON-HODGKIN^S LYMPHOMA
     Dosage: 700 MG, UNK
     Route: 042
     Dates: start: 20141114, end: 20150206

REACTIONS (6)
  - Neuropathy peripheral [Recovered/Resolved]
  - Off label use [Unknown]
  - Asthenia [Recovered/Resolved]
  - Paraesthesia [Recovered/Resolved]
  - Product use issue [Unknown]
  - Atonic seizures [Recovered/Resolved]

NARRATIVE: CASE EVENT DATE: 20150227
